FAERS Safety Report 14340409 (Version 1)
Quarter: 2018Q1

REPORT INFORMATION
  Report Type: Report from Study
  Country: US (occurrence: US)
  Receive Date: 20180101
  Receipt Date: 20180101
  Transmission Date: 20180509
  Serious: Yes (Other)
  Sender: FDA-Public Use
  Company Number: US-ARIAD PHARMACEUTICALS, INC-2017US009034

PATIENT
  Age: 38 Year
  Sex: Female

DRUGS (3)
  1. PONATINIB [Suspect]
     Active Substance: PONATINIB
     Dosage: 15 MG, QD
     Route: 048
     Dates: start: 20170926
  2. PONATINIB [Suspect]
     Active Substance: PONATINIB
     Indication: ACUTE LYMPHOCYTIC LEUKAEMIA
     Dosage: 30 MG, QD
     Route: 048
     Dates: start: 20170918
  3. LOVENOX [Suspect]
     Active Substance: ENOXAPARIN SODIUM
     Indication: PRODUCT USED FOR UNKNOWN INDICATION
     Route: 065

REACTIONS (29)
  - Rhinorrhoea [Unknown]
  - Nausea [Unknown]
  - Arthralgia [Unknown]
  - Oedema [Unknown]
  - Immunodeficiency [Unknown]
  - Pulmonary congestion [Unknown]
  - Influenza like illness [Unknown]
  - Pruritus [Unknown]
  - Graft versus host disease in gastrointestinal tract [Unknown]
  - Lymphadenopathy [Unknown]
  - Intra-abdominal haematoma [Unknown]
  - Abdominal tenderness [Unknown]
  - Hypomagnesaemia [Unknown]
  - Palpitations [Unknown]
  - Arthropathy [Unknown]
  - Abdominal pain [Unknown]
  - Headache [Unknown]
  - Drug intolerance [Unknown]
  - Paranasal sinus discomfort [Unknown]
  - Papule [Unknown]
  - Hypertension [Unknown]
  - Dyspnoea [Unknown]
  - Peripheral swelling [Unknown]
  - Rash [Unknown]
  - Complication associated with device [Unknown]
  - Pyrexia [Unknown]
  - Fatigue [Unknown]
  - Appetite disorder [Unknown]
  - Diarrhoea [Unknown]

NARRATIVE: CASE EVENT DATE: 201709
